FAERS Safety Report 24760392 (Version 1)
Quarter: 2024Q4

REPORT INFORMATION
  Report Type: Spontaneous
  Country: AU (occurrence: AU)
  Receive Date: 20241220
  Receipt Date: 20241220
  Transmission Date: 20250115
  Serious: Yes (Hospitalization, Other)
  Sender: MERCK
  Company Number: AU-009507513-2412AUS007478

PATIENT
  Age: 74 Year
  Sex: Male

DRUGS (1)
  1. BCG LIVE [Suspect]
     Active Substance: BACILLUS CALMETTE-GUERIN SUBSTRAIN TICE LIVE ANTIGEN
     Indication: Bladder cancer
     Dosage: UNK
     Route: 043

REACTIONS (5)
  - Disseminated Bacillus Calmette-Guerin infection [Recovering/Resolving]
  - Immune thrombocytopenia [Recovered/Resolved]
  - Pancytopenia [Recovering/Resolving]
  - Bone marrow granuloma [Recovering/Resolving]
  - Lung infiltration [Recovering/Resolving]
